FAERS Safety Report 9611908 (Version 1)
Quarter: 2013Q4

REPORT INFORMATION
  Report Type: Spontaneous
  Country: SE (occurrence: SE)
  Receive Date: 20131010
  Receipt Date: 20131010
  Transmission Date: 20140711
  Serious: Yes (Other)
  Sender: FDA-Public Use
  Company Number: SE-ASTELLAS-2013EU008596

PATIENT
  Age: 84 Year
  Sex: Female

DRUGS (10)
  1. BETMIGA [Suspect]
     Indication: HYPERTONIC BLADDER
     Dosage: 50 MG, UID/QD
     Route: 065
     Dates: start: 20130913, end: 20130917
  2. VESICARE [Suspect]
     Indication: HYPERTONIC BLADDER
     Dosage: 5 MG, UNKNOWN/D
     Route: 065
     Dates: start: 2008
  3. VESICARE [Suspect]
     Dosage: 2.5 MG, UNKNOWN/D
     Route: 065
     Dates: start: 2010, end: 20130912
  4. FUROSEMID                          /00032601/ [Concomitant]
     Dosage: UNK
     Route: 065
  5. LACTULOSE [Concomitant]
     Dosage: UNK
     Route: 065
  6. LEVAXIN [Concomitant]
     Dosage: UNK
     Route: 065
  7. NITRAZEPAM [Concomitant]
     Dosage: UNK
     Route: 065
  8. NITRAZEPAM [Concomitant]
     Dosage: UNK
     Route: 065
  9. STESOLID [Concomitant]
     Dosage: UNK
     Route: 065
  10. TRADOLAN [Concomitant]
     Dosage: UNK
     Route: 065

REACTIONS (3)
  - Wrong technique in drug usage process [Unknown]
  - Dry mouth [Unknown]
  - Hypersensitivity [Recovered/Resolved]
